FAERS Safety Report 7243154-4 (Version None)
Quarter: 2011Q1

REPORT INFORMATION
  Report Type: 
  Country: None (occurrence: None)
  Receive Date: 20110125
  Receipt Date: 20110118
  Transmission Date: 20110831
  Serious: Yes (Hospitalization, Other)
  Sender: FDA-Public Use
  Company Number: US-AMGEN-USASP2011003252

PATIENT
  Age: 56 Year
  Sex: Male

DRUGS (1)
  1. ENBREL [Suspect]
     Indication: PSORIASIS
     Dosage: 50 MG, 2 TIMES/WK
     Dates: start: 20080601, end: 20101101

REACTIONS (6)
  - ARTHRALGIA [None]
  - STAPHYLOCOCCAL INFECTION [None]
  - GAIT DISTURBANCE [None]
  - PSORIASIS [None]
  - MENISCAL DEGENERATION [None]
  - JOINT SWELLING [None]
